FAERS Safety Report 13851169 (Version 1)
Quarter: 2017Q3

REPORT INFORMATION
  Report Type: Other
  Country: CN (occurrence: CN)
  Receive Date: 20170809
  Receipt Date: 20170809
  Transmission Date: 20171127
  Serious: Yes (Hospitalization)
  Sender: FDA-Public Use
  Company Number: CN-GEHC-2017CSU002360

PATIENT

DRUGS (1)
  1. OMNIPAQUE [Suspect]
     Active Substance: IOHEXOL
     Indication: ABDOMINAL PAIN
     Dosage: 100 ML, SINGLE
     Route: 041
     Dates: start: 20170214, end: 20170214

REACTIONS (4)
  - Eyelid oedema [Recovering/Resolving]
  - Papule [Recovering/Resolving]
  - Dermatitis [Recovering/Resolving]
  - Rash pruritic [Recovering/Resolving]

NARRATIVE: CASE EVENT DATE: 20170214
